FAERS Safety Report 13225837 (Version 2)
Quarter: 2018Q1

REPORT INFORMATION
  Report Type: Other
  Country: US (occurrence: US)
  Receive Date: 20170213
  Receipt Date: 20180130
  Transmission Date: 20180508
  Serious: No
  Sender: FDA-Public Use
  Company Number: US-ACORDA-ACO_133142_2017

PATIENT
  Sex: Female

DRUGS (1)
  1. AMPYRA [Suspect]
     Active Substance: DALFAMPRIDINE
     Indication: PRODUCT USED FOR UNKNOWN INDICATION
     Dosage: 10 MG, BID
     Route: 048

REACTIONS (10)
  - Pollakiuria [Recovering/Resolving]
  - Muscular weakness [Unknown]
  - Walking aid user [Unknown]
  - Nausea [Recovered/Resolved]
  - Tooth infection [Recovered/Resolved]
  - Drug ineffective [Unknown]
  - Muscular weakness [Recovered/Resolved]
  - Therapeutic response unexpected [Unknown]
  - Anxiety [Recovered/Resolved]
  - Back pain [Unknown]
